FAERS Safety Report 22275839 (Version 1)
Quarter: 2023Q2

REPORT INFORMATION
  Report Type: Spontaneous
  Country: US (occurrence: US)
  Receive Date: 20230502
  Receipt Date: 20230502
  Transmission Date: 20230721
  Serious: No
  Sender: FDA-Public Use
  Company Number: US-SANOFI-01594263

PATIENT
  Age: 63 Year
  Sex: Female

DRUGS (2)
  1. LANTUS SOLOSTAR [Suspect]
     Active Substance: INSULIN GLARGINE
     Indication: Type 2 diabetes mellitus
     Dosage: 44 U, QD
  2. LANTUS SOLOSTAR [Suspect]
     Active Substance: INSULIN GLARGINE
     Dosage: 42 U, QD

REACTIONS (1)
  - Product storage error [Unknown]
